FAERS Safety Report 10512119 (Version 1)
Quarter: 2014Q4

REPORT INFORMATION
  Report Type: Spontaneous
  Country: US (occurrence: US)
  Receive Date: 20141010
  Receipt Date: 20141010
  Transmission Date: 20150528
  Serious: No
  Sender: FDA-Public Use
  Company Number: US-TEVA-515051USA

PATIENT
  Sex: Female

DRUGS (2)
  1. BIRTH CONTROL PILL [Concomitant]
     Indication: CONTRACEPTION
  2. PLAN B ONE-STEP [Suspect]
     Active Substance: LEVONORGESTREL
     Indication: POST COITAL CONTRACEPTION
     Dosage: 1.5 MILLIGRAM DAILY;
     Route: 048
     Dates: start: 20141005, end: 20141005

REACTIONS (1)
  - Pelvic pain [Not Recovered/Not Resolved]
